FAERS Safety Report 10502506 (Version 2)
Quarter: 2014Q4

REPORT INFORMATION
  Report Type: Spontaneous
  Country: US (occurrence: None)
  Receive Date: 20141003
  Receipt Date: 20141104
  Transmission Date: 20150528
  Serious: Yes (Hospitalization, Other)
  Sender: FDA-Public Use
  Company Number: QSC-2014-0669

PATIENT
  Age: 10 Year
  Sex: Female
  Weight: 54 kg

DRUGS (11)
  1. PREDNISONE (PREDNISONE) [Concomitant]
     Active Substance: PREDNISONE
  2. FAMOTIDINE ( FAMOTIDINE) [Concomitant]
  3. FAMOTIDONE (FAMOTIDINE) [Concomitant]
  4. LEVOFLOXACIN (LEVOFLOXACIN) [Concomitant]
     Active Substance: LEVOFLOXACIN
  5. ERGOCALCIFEROL (ERGOCALCIFEROL) [Concomitant]
     Active Substance: ERGOCALCIFEROL
  6. AMLODIPINE [Concomitant]
     Active Substance: AMLODIPINE BESYLATE
  7. TYLENOL W/ CODEINE NO 3 (CODEINE PHOSPHATE, PARACETAMOL) [Concomitant]
  8. H.P. ACTHAR [Suspect]
     Active Substance: CORTICOTROPIN
     Indication: DERMATOMYOSITIS
     Dosage: 40 UNITS
     Route: 058
     Dates: start: 20140422, end: 20140926
  9. HYDROCHLOROQUINE (HYDROCHLOROQUINE) [Concomitant]
  10. FOLIC ACID  (FOLIC ACID) [Concomitant]
     Active Substance: FOLIC ACID
  11. BACITRACIN (BACITRACIN) [Concomitant]

REACTIONS (40)
  - Seizure [None]
  - Blood creatine phosphokinase increased [None]
  - Oxygen saturation decreased [None]
  - Headache [None]
  - Hyperaemia [None]
  - Aspartate aminotransferase increased [None]
  - Blood albumin decreased [None]
  - Pain [None]
  - Alanine aminotransferase increased [None]
  - Neutrophil count increased [None]
  - Abasia [None]
  - Aldolase increased [None]
  - Pain in extremity [None]
  - Arthralgia [None]
  - Discomfort [None]
  - Cutaneous calcification [None]
  - Condition aggravated [None]
  - Calcinosis [None]
  - Candida infection [None]
  - Lung disorder [None]
  - Blood urea increased [None]
  - Chest pain [None]
  - Dermatomyositis [None]
  - Subcutaneous abscess [None]
  - Cellulitis [None]
  - Hypertension [None]
  - Nausea [None]
  - Drug ineffective [None]
  - Wound infection fungal [None]
  - Dyspnoea [None]
  - White blood cell count increased [None]
  - Haemoglobin decreased [None]
  - Wound infection staphylococcal [None]
  - Infection [None]
  - Vomiting [None]
  - Haematocrit decreased [None]
  - Red blood cell sedimentation rate increased [None]
  - Antibiotic level above therapeutic [None]
  - Postictal state [None]
  - Cerebral atrophy [None]

NARRATIVE: CASE EVENT DATE: 20140612
